FAERS Safety Report 5163069-5 (Version None)
Quarter: 2006Q4

REPORT INFORMATION
  Report Type: 
  Country: None (occurrence: None)
  Receive Date: 20061201
  Receipt Date: 20061123
  Transmission Date: 20070319
  Serious: Yes (Life-Threatening, Hospitalization)
  Sender: FDA-Public Use
  Company Number: HU-ABBOTT-06P-076-0351444-00

PATIENT
  Sex: Female

DRUGS (2)
  1. LIPIDIL SUPRA TABLETS [Suspect]
     Indication: DRUG USE FOR UNKNOWN INDICATION
     Route: 048
     Dates: start: 20060614, end: 20060717
  2. PROPRANOLOL HYDROCHLORIDE [Concomitant]
     Indication: TACHYCARDIA
     Dosage: NOT REPORTED
     Dates: start: 20060101, end: 20060717

REACTIONS (1)
  - HEPATITIS TOXIC [None]
